FAERS Safety Report 10971285 (Version 4)
Quarter: 2015Q3

REPORT INFORMATION
  Report Type: Spontaneous
  Country: GB (occurrence: GB)
  Receive Date: 20150331
  Receipt Date: 20150821
  Transmission Date: 20151125
  Serious: Yes (Hospitalization, Other)
  Sender: FDA-Public Use
  Company Number: GB-PFIZER INC-2015108820

PATIENT
  Age: 51 Year
  Sex: Male

DRUGS (10)
  1. AMLODIPINE BESILATE [Suspect]
     Active Substance: AMLODIPINE BESYLATE
     Indication: HYPERTENSION
     Dosage: 5 MG, 1X/DAY
     Route: 048
     Dates: start: 20140425, end: 20150225
  2. CLOZARIL [Suspect]
     Active Substance: CLOZAPINE
     Dosage: 450 MG, 1X/DAY
     Route: 048
  3. CLOZARIL [Suspect]
     Active Substance: CLOZAPINE
     Dosage: UNK
     Route: 048
     Dates: start: 20130725
  4. AMISULPRIDE [Concomitant]
     Active Substance: AMISULPRIDE
     Indication: SCHIZOAFFECTIVE DISORDER
     Dosage: 1000 MG, 1X/DAY
     Route: 048
     Dates: start: 1986
  5. TAZOCIN [Suspect]
     Active Substance: PIPERACILLIN SODIUM\TAZOBACTAM SODIUM
     Dosage: UNK
     Route: 042
  6. CLOZARIL [Suspect]
     Active Substance: CLOZAPINE
     Indication: SCHIZOPHRENIA
     Dosage: UNK
     Route: 048
     Dates: start: 20100506
  7. DOXAZOSIN [Concomitant]
     Active Substance: DOXAZOSIN\DOXAZOSIN MESYLATE
     Indication: HYPERTENSION
     Dosage: 1 MG, 1X/DAY
     Route: 048
     Dates: start: 20150225
  8. PIRENZEPINE [Concomitant]
     Active Substance: PIRENZEPINE
     Indication: SALIVARY HYPERSECRETION
     Dosage: 50 MG, QD
     Route: 048
     Dates: start: 2014
  9. SODIUM VALPROATE [Concomitant]
     Active Substance: VALPROATE SODIUM
     Indication: SCHIZOAFFECTIVE DISORDER
     Dosage: 2300 MG, 1X/DAY
     Route: 048
     Dates: start: 2007
  10. LITHIUM. [Concomitant]
     Active Substance: LITHIUM
     Indication: SCHIZOAFFECTIVE DISORDER
     Dosage: 900 MG, QD
     Route: 048
     Dates: start: 200512

REACTIONS (9)
  - Neutropenia [Recovered/Resolved]
  - White blood cell count increased [Recovered/Resolved]
  - Pneumonia [Unknown]
  - Blood creatine phosphokinase increased [Recovered/Resolved]
  - Neutrophil count decreased [Recovered/Resolved]
  - Neutrophil count decreased [Unknown]
  - Haemoglobin decreased [Not Recovered/Not Resolved]
  - Lower respiratory tract infection [Unknown]
  - Neutrophil count decreased [Recovered/Resolved]

NARRATIVE: CASE EVENT DATE: 20141229
